FAERS Safety Report 9002057 (Version 1)
Quarter: 2013Q1

REPORT INFORMATION
  Report Type: Spontaneous
  Country: JP (occurrence: JP)
  Receive Date: 20130107
  Receipt Date: 20130107
  Transmission Date: 20140127
  Serious: Yes (Life-Threatening)
  Sender: FDA-Public Use
  Company Number: JP-ROCHE-1167505

PATIENT
  Age: 77 Year
  Sex: Female
  Weight: 48 kg

DRUGS (11)
  1. AVASTIN [Suspect]
     Indication: RECTAL CANCER RECURRENT
     Route: 041
     Dates: start: 20121110, end: 20121110
  2. XELODA [Suspect]
     Indication: RECTAL CANCER RECURRENT
     Dosage: IN THE MORNING: 1500MG. IN THE EVENING: 1200MG. 2 WEEKS ADMINISTRATION FOLLOWED BY 1 WEEK REST
     Route: 048
     Dates: start: 20121110, end: 20121124
  3. ELPLAT [Concomitant]
     Indication: RECTAL CANCER RECURRENT
     Route: 041
     Dates: start: 20121110, end: 20121110
  4. DIOVAN [Concomitant]
     Indication: HYPERTENSION
     Route: 048
     Dates: start: 20110830
  5. CALBLOCK [Concomitant]
     Indication: HYPERTENSION
     Route: 048
     Dates: start: 20110830
  6. JANUVIA [Concomitant]
     Indication: DIABETES MELLITUS
     Route: 048
     Dates: start: 20110830
  7. MAGMITT [Concomitant]
     Indication: CONSTIPATION
     Route: 048
     Dates: start: 20110905
  8. MIYA-BM [Concomitant]
     Indication: CONSTIPATION
     Route: 048
     Dates: start: 20110905
  9. PURSENNID [Concomitant]
     Indication: CONSTIPATION
     Dosage: AT THE A DOSE OBSTIPATION
     Route: 048
     Dates: start: 20110915
  10. FENTOS [Concomitant]
     Indication: CANCER PAIN
     Route: 062
     Dates: start: 20121110
  11. LOXONIN [Concomitant]
     Indication: PAIN
     Dosage: A DOSE
     Route: 048
     Dates: start: 20121128

REACTIONS (1)
  - Rectal perforation [Recovered/Resolved]
